FAERS Safety Report 23684559 (Version 1)
Quarter: 2024Q1

REPORT INFORMATION
  Report Type: Spontaneous
  Country: US (occurrence: US)
  Receive Date: 20240328
  Receipt Date: 20240328
  Transmission Date: 20240409
  Serious: No
  Sender: FDA-Public Use
  Company Number: US-Evolus, Inc.-2024EV000038

PATIENT
  Sex: Female

DRUGS (2)
  1. JEUVEAU [Suspect]
     Active Substance: PRABOTULINUMTOXINA-XVFS
     Indication: Product use in unapproved indication
     Dosage: FOREHEAD, BETWEEN EYES ON BRIDGE OF NOSE, AND UPPER LIP
     Dates: start: 20240103, end: 20240103
  2. JEUVEAU [Suspect]
     Active Substance: PRABOTULINUMTOXINA-XVFS
     Dosage: ABOVE THE EYEBROW
     Dates: start: 20240110, end: 20240110

REACTIONS (5)
  - Mephisto sign [Not Recovered/Not Resolved]
  - Pain in jaw [Unknown]
  - Eyelid ptosis [Not Recovered/Not Resolved]
  - Diplopia [Not Recovered/Not Resolved]
  - Off label use [Unknown]

NARRATIVE: CASE EVENT DATE: 20240108
